FAERS Safety Report 25575914 (Version 4)
Quarter: 2025Q4

REPORT INFORMATION
  Report Type: Report from Study
  Country: US (occurrence: None)
  Receive Date: 20250718
  Receipt Date: 20251020
  Transmission Date: 20260118
  Serious: Yes (Other)
  Sender: UCB
  Company Number: US-UCBSA-2025043882

PATIENT
  Age: 27 Year
  Weight: 49.9 kg

DRUGS (14)
  1. FENFLURAMINE [Suspect]
     Active Substance: FENFLURAMINE
     Indication: Severe myoclonic epilepsy of infancy
     Dosage: 5.5 MILLILITER, 2X/DAY (BID)
  2. FENFLURAMINE [Suspect]
     Active Substance: FENFLURAMINE
     Dosage: 0.48 MILLIGRAM/KILOGRAM/DAY TOTALLY 24.2 MILLIGRAM PER DAY.
  3. CLOBAZAM [Concomitant]
     Active Substance: CLOBAZAM
     Indication: Epilepsy
     Dosage: 10 MG TABLETS: 1.5 TABLETS (15 MG) IN THE MORNING, 1 TABLET (10 MG) IN THE EVENING
  4. CLONAZEPAM [Concomitant]
     Active Substance: CLONAZEPAM
     Indication: Seizure
     Dosage: 0.5 MG TABLETS: 1.5 TABLETS (0.75 MG) IN THE MORNING, 0.5 MG IN THE AFTERNOON, 1.5 TABLETS (0.75 MG) IN THE EVENING 1 MG ORAL DISSOLVABLE TABLETS: 3 MG AS NEEDED
  5. DIAZEPAM [Concomitant]
     Active Substance: DIAZEPAM
     Indication: Seizure cluster
     Dosage: 10 MG AS NEEDED
  6. PANTOPRAZOLE [Concomitant]
     Active Substance: PANTOPRAZOLE
     Indication: Gastrooesophageal reflux disease
     Dosage: 10 MG
  7. NORETHINDRONE [Concomitant]
     Active Substance: NORETHINDRONE
     Indication: Hormonal contraception
     Dosage: 5 MG DAILY
  8. TOPIRAMATE [Concomitant]
     Active Substance: TOPIRAMATE
     Indication: Product used for unknown indication
     Dosage: 100 MG TABLETS: 2 TABLETS TWICE DAILY (400 MG TOTAL), 25 MG AT BEDTIME
  9. XCOPRI [Concomitant]
     Active Substance: CENOBAMATE
     Indication: Epilepsy
     Dosage: 12.5 MILLIGRAM, ONCE DAILY (QD)
  10. ONFI [Concomitant]
     Active Substance: CLOBAZAM
     Indication: Epilepsy
     Dosage: 15/10 MG BID
  11. VALTOCO [Concomitant]
     Active Substance: DIAZEPAM
     Indication: Product used for unknown indication
     Dosage: 10 MILLIGRAM PRN
  12. TOPAMAX [Concomitant]
     Active Substance: TOPIRAMATE
     Indication: Product used for unknown indication
     Dosage: 200/225 MG
  13. AYGESTIN [Concomitant]
     Active Substance: NORETHINDRONE ACETATE
     Indication: Product used for unknown indication
     Dosage: 5 MILLIGRAM
  14. LANSOPRAZOLE [Concomitant]
     Active Substance: LANSOPRAZOLE
     Indication: Product used for unknown indication
     Dosage: 10 MILLIGRAM, 2X/DAY (BID)

REACTIONS (1)
  - Aortic valve thickening [Not Recovered/Not Resolved]
